FAERS Safety Report 4898670-7 (Version None)
Quarter: 2006Q1

REPORT INFORMATION
  Report Type: 
  Country: None (occurrence: None)
  Receive Date: 20060202
  Receipt Date: 20060125
  Transmission Date: 20060701
  Serious: Yes (Hospitalization)
  Sender: FDA-Public Use
  Company Number: US-BOEHRINGER INGELHEIM PHARMACEUTICALS, INC.-2006-BP-00942BP

PATIENT
  Sex: Female

DRUGS (7)
  1. SPIRIVA [Suspect]
     Indication: LUNG DISORDER
     Route: 055
  2. ADVAIR DISKUS 100/50 [Concomitant]
  3. LASIX [Concomitant]
  4. POTASSIUM [Concomitant]
  5. VASOTEC [Concomitant]
  6. PLAVIX [Concomitant]
  7. ORTHO TRI-CYCLEN [Concomitant]

REACTIONS (3)
  - AGEUSIA [None]
  - BRONCHITIS [None]
  - DYSPNOEA [None]
